FAERS Safety Report 6160115-7 (Version None)
Quarter: 2009Q2

REPORT INFORMATION
  Report Type: 
  Country: None (occurrence: None)
  Receive Date: 20090420
  Receipt Date: 20090416
  Transmission Date: 20091009
  Serious: Yes (Life-Threatening)
  Sender: FDA-Public Use
  Company Number: JP-ASTRAZENECA-2009AP01548

PATIENT
  Age: 80 Year
  Sex: Male
  Weight: 59 kg

DRUGS (4)
  1. CASODEX [Suspect]
     Indication: PROSTATE CANCER
     Route: 048
     Dates: start: 20081119, end: 20090224
  2. SHAKUYAKU-KANZO-TO [Suspect]
     Route: 048
     Dates: start: 20060704, end: 20090101
  3. PREMINENT [Suspect]
     Indication: HYPERTENSION
     Route: 048
     Dates: start: 20080722, end: 20090226
  4. OPALMON [Concomitant]
     Route: 048
     Dates: start: 20060711

REACTIONS (6)
  - ALANINE AMINOTRANSFERASE INCREASED [None]
  - ASPARTATE AMINOTRANSFERASE INCREASED [None]
  - BLOOD CREATINE PHOSPHOKINASE INCREASED [None]
  - HEPATIC FUNCTION ABNORMAL [None]
  - HYPERCREATINAEMIA [None]
  - HYPOKALAEMIA [None]
